FAERS Safety Report 9648585 (Version 1)
Quarter: 2013Q4

REPORT INFORMATION
  Report Type: Spontaneous
  Country: BR (occurrence: BR)
  Receive Date: 20131028
  Receipt Date: 20131028
  Transmission Date: 20140711
  Serious: Yes (Other)
  Sender: FDA-Public Use
  Company Number: BR-PFIZER INC-2013301771

PATIENT
  Sex: Male

DRUGS (2)
  1. FRONTAL [Suspect]
     Dosage: 1 MG, UNK
     Route: 048
  2. FRONTAL [Suspect]
     Dosage: 2 MG, 2X/DAY
     Route: 048

REACTIONS (3)
  - Drug dependence [Unknown]
  - Nervous system disorder [Unknown]
  - Tremor [Unknown]
